FAERS Safety Report 23386748 (Version 1)
Quarter: 2024Q1

REPORT INFORMATION
  Report Type: Spontaneous
  Country: US (occurrence: US)
  Receive Date: 20240110
  Receipt Date: 20240110
  Transmission Date: 20240410
  Serious: No
  Sender: FDA-Public Use
  Company Number: US-CATALYST PHARMACEUTICALS, INC-US-CATA-23-00282

PATIENT
  Age: 69 Year
  Sex: Female

DRUGS (3)
  1. FIRDAPSE [Suspect]
     Active Substance: AMIFAMPRIDINE PHOSPHATE
     Indication: Myasthenic syndrome
     Dosage: UNKNOWN
     Route: 048
  2. FIRDAPSE [Suspect]
     Active Substance: AMIFAMPRIDINE PHOSPHATE
     Dosage: 2 TABLETS THREE TIMES A DAY
     Route: 048
  3. INSULIN NOS [Concomitant]
     Active Substance: INSULIN NOS
     Indication: Product used for unknown indication
     Dosage: TWO DIFFERENT KINDS OF INSULIN
     Route: 065

REACTIONS (7)
  - Joint injury [Not Recovered/Not Resolved]
  - Vertigo [Recovering/Resolving]
  - Fall [Unknown]
  - Abdominal discomfort [Unknown]
  - Dizziness [Not Recovered/Not Resolved]
  - Nausea [Recovering/Resolving]
  - Product dose omission issue [Unknown]

NARRATIVE: CASE EVENT DATE: 20230501
